FAERS Safety Report 7702848-4 (Version None)
Quarter: 2011Q3

REPORT INFORMATION
  Report Type: 
  Country: None (occurrence: None)
  Receive Date: 20110823
  Receipt Date: 20110812
  Transmission Date: 20111222
  Serious: Yes (Other)
  Sender: FDA-Public Use
  Company Number: US-PERRIGO-11US006711

PATIENT
  Age: 24 Year
  Sex: Female
  Weight: 122.45 kg

DRUGS (1)
  1. NAPROXEN SODIUM AND PSEUDOEPHEDRINE HYDROCHLORIDE [Suspect]
     Indication: PRODUCT USED FOR UNKNOWN INDICATION
     Dosage: 6 CAPLETS, SINGLE
     Route: 048
     Dates: start: 20110812, end: 20110812

REACTIONS (2)
  - OVERDOSE [None]
  - UNRESPONSIVE TO STIMULI [None]
